FAERS Safety Report 8346175-3 (Version None)
Quarter: 2012Q2

REPORT INFORMATION
  Report Type: 
  Country: None (occurrence: None)
  Receive Date: 20120509
  Receipt Date: 20120223
  Transmission Date: 20120825
  Serious: Yes (Other)
  Sender: FDA-Public Use
  Company Number: BR-US-EMD SERONO, INC.-7115655

PATIENT
  Sex: Female
  Weight: 150 kg

DRUGS (3)
  1. ALPRAZOLAM [Concomitant]
     Indication: ANXIETY
  2. REBIF [Suspect]
     Indication: PRODUCT USED FOR UNKNOWN INDICATION
     Dates: start: 20110317
  3. SERENATA (SERTRALINE) [Concomitant]
     Indication: PRODUCT USED FOR UNKNOWN INDICATION

REACTIONS (10)
  - FEELING HOT [None]
  - PALLOR [None]
  - FEELING COLD [None]
  - FATIGUE [None]
  - COLD SWEAT [None]
  - INJECTION SITE ERYTHEMA [None]
  - DIZZINESS [None]
  - INJECTION SITE INFLAMMATION [None]
  - BURNS THIRD DEGREE [None]
  - PARAESTHESIA [None]
